FAERS Safety Report 26066880 (Version 1)
Quarter: 2025Q4

REPORT INFORMATION
  Report Type: Spontaneous
  Country: JP (occurrence: None)
  Receive Date: 20251119
  Receipt Date: 20251119
  Transmission Date: 20260118
  Serious: Yes (Hospitalization)
  Sender: ORGANON
  Company Number: JP-ORGANON-O2511JPN001338

PATIENT
  Age: 79 Year
  Sex: Male

DRUGS (3)
  1. CARBIDOPA\LEVODOPA [Suspect]
     Active Substance: CARBIDOPA\LEVODOPA
     Dosage: 1 DOSAGE FORM, TID
  2. MAGNESIUM OXIDE [Suspect]
     Active Substance: MAGNESIUM OXIDE
     Indication: Change of bowel habit
     Dosage: 250 MILLIGRAM, TID
  3. MAGNESIUM OXIDE [Suspect]
     Active Substance: MAGNESIUM OXIDE
     Dosage: 500 MILLIGRAM, TID

REACTIONS (4)
  - Fracture [Unknown]
  - Tongue discolouration [Unknown]
  - Change of bowel habit [Unknown]
  - Constipation [Unknown]
